FAERS Safety Report 6117144-9 (Version None)
Quarter: 2009Q1

REPORT INFORMATION
  Report Type: 
  Country: None (occurrence: None)
  Receive Date: 20090314
  Receipt Date: 20090107
  Transmission Date: 20090719
  Serious: No
  Sender: FDA-Public Use
  Company Number: US-ABBOTT-09P-163-0496445-00

PATIENT
  Sex: Female

DRUGS (1)
  1. HUMIRA [Suspect]
     Indication: PSORIATIC ARTHROPATHY
     Route: 058
     Dates: start: 20070101, end: 20081211

REACTIONS (9)
  - COUGH [None]
  - DYSPNOEA [None]
  - PAIN [None]
  - PHARYNGITIS [None]
  - PNEUMONIA [None]
  - PRURITUS [None]
  - PSORIASIS [None]
  - STREPTOCOCCAL INFECTION [None]
  - TOOTH EROSION [None]
